FAERS Safety Report 5204850-3 (Version None)
Quarter: 2007Q1

REPORT INFORMATION
  Report Type: 
  Country: None (occurrence: None)
  Receive Date: 20070110
  Receipt Date: 20060809
  Transmission Date: 20070707
  Serious: No
  Sender: FDA-Public Use
  Company Number: US-BRISTOL-MYERS SQUIBB COMPANY-13469903

PATIENT
  Age: 45 Year
  Sex: Female

DRUGS (4)
  1. ABILIFY [Suspect]
     Indication: DEPRESSION
     Dates: start: 20030101
  2. ABILIFY [Suspect]
     Indication: SCHIZOAFFECTIVE DISORDER
     Dates: start: 20030101
  3. LEXAPRO [Concomitant]
     Dates: end: 20060808
  4. WELLBUTRIN [Concomitant]

REACTIONS (2)
  - DYSPNOEA [None]
  - FATIGUE [None]
